FAERS Safety Report 18900763 (Version 4)
Quarter: 2021Q3

REPORT INFORMATION
  Report Type: Report from Study
  Country: US (occurrence: US)
  Receive Date: 20210216
  Receipt Date: 20210705
  Transmission Date: 20211014
  Serious: Yes (Hospitalization)
  Sender: FDA-Public Use
  Company Number: NVSC2021US033077

PATIENT
  Sex: Female

DRUGS (2)
  1. ENTRESTO [Suspect]
     Active Substance: SACUBITRIL\VALSARTAN
     Indication: CARDIAC FAILURE CHRONIC
     Dosage: 0.5 DF, UNKNOWN (24/26 MG)
     Route: 048
     Dates: start: 202012
  2. ENTRESTO [Suspect]
     Active Substance: SACUBITRIL\VALSARTAN
     Dosage: 1 DF, UNKNOWN (49/51 MG)
     Route: 048
     Dates: start: 202012

REACTIONS (2)
  - Kidney infection [Unknown]
  - Dizziness [Not Recovered/Not Resolved]
